FAERS Safety Report 9373397 (Version 2)
Quarter: 2013Q3

REPORT INFORMATION
  Report Type: Spontaneous
  Country: US (occurrence: US)
  Receive Date: 20130627
  Receipt Date: 20130710
  Transmission Date: 20140515
  Serious: Yes (Other)
  Sender: FDA-Public Use
  Company Number: US-ELI_LILLY_AND_COMPANY-US201305009314

PATIENT
  Age: 60 Year
  Sex: Female

DRUGS (2)
  1. CYMBALTA [Suspect]
     Indication: DEPRESSION
     Dosage: 60 MG, QOD
     Route: 048
     Dates: start: 20050118
  2. CYMBALTA [Suspect]
     Dosage: 90 MG, QOD
     Route: 048

REACTIONS (1)
  - Breast cancer stage II [Not Recovered/Not Resolved]
